FAERS Safety Report 5657225-7 (Version None)
Quarter: 2008Q1

REPORT INFORMATION
  Report Type: 
  Country: None (occurrence: None)
  Receive Date: 20080310
  Receipt Date: 20080305
  Transmission Date: 20080703
  Serious: Yes (Hospitalization, Other)
  Sender: FDA-Public Use
  Company Number: US-ASTRAZENECA-2008UW04529

PATIENT
  Age: 81 Year
  Sex: Female
  Weight: 52.2 kg

DRUGS (6)
  1. CRESTOR [Suspect]
     Indication: BLOOD CHOLESTEROL INCREASED
     Route: 048
     Dates: start: 20070101, end: 20080101
  2. CRESTOR [Suspect]
     Route: 048
     Dates: start: 20080101
  3. LISINOPRIL [Concomitant]
  4. VITAMIN [Concomitant]
  5. HYDROCHLOROTHIAZIDE [Concomitant]
  6. HYZAAR [Concomitant]
     Indication: HYPERTENSION

REACTIONS (5)
  - DIARRHOEA [None]
  - GASTROINTESTINAL INFECTION [None]
  - POOR PERIPHERAL CIRCULATION [None]
  - RENAL ARTERY STENT PLACEMENT [None]
  - WEIGHT DECREASED [None]
